FAERS Safety Report 6169959-9 (Version None)
Quarter: 2009Q2

REPORT INFORMATION
  Report Type: 
  Country: None (occurrence: None)
  Receive Date: 20090424
  Receipt Date: 20090413
  Transmission Date: 20091009
  Serious: Yes (Other)
  Sender: FDA-Public Use
  Company Number: 191690ISR

PATIENT
  Age: 62 Year
  Sex: Female

DRUGS (2)
  1. FLECAINIDE ACETATE [Suspect]
     Dosage: (150 MG)   INTRAVENOUS DRIP
     Route: 041
  2. METOPROLOL TARTRATE [Concomitant]

REACTIONS (10)
  - ATRIAL FIBRILLATION [None]
  - ATRIAL FLUTTER [None]
  - BRUGADA SYNDROME [None]
  - CONDITION AGGRAVATED [None]
  - LEFT ATRIAL DILATATION [None]
  - LEFT VENTRICULAR HYPERTROPHY [None]
  - NODAL RHYTHM [None]
  - SINUS ARREST [None]
  - SINUS BRADYCARDIA [None]
  - SINUS TACHYCARDIA [None]
